FAERS Safety Report 19936214 (Version 1)
Quarter: 2021Q4

REPORT INFORMATION
  Report Type: Report from Study
  Country: US (occurrence: US)
  Receive Date: 20211008
  Receipt Date: 20211008
  Transmission Date: 20220304
  Serious: Yes (Death, Other)
  Sender: FDA-Public Use
  Company Number: US-JAZZ-2021-US-018850

PATIENT
  Age: 61 Year
  Sex: Female

DRUGS (1)
  1. LURBINECTEDIN [Suspect]
     Active Substance: LURBINECTEDIN
     Indication: Product used for unknown indication
     Dosage: 4 MILLIGRAM
     Route: 042
     Dates: start: 20210928, end: 20210928

REACTIONS (1)
  - Death [Fatal]

NARRATIVE: CASE EVENT DATE: 20211002
